FAERS Safety Report 9781530 (Version 1)
Quarter: 2013Q4

REPORT INFORMATION
  Report Type: Spontaneous
  Country: FR (occurrence: FR)
  Receive Date: 20131224
  Receipt Date: 20131224
  Transmission Date: 20140711
  Serious: Yes (Death, Life-Threatening, Hospitalization)
  Sender: FDA-Public Use
  Company Number: FR-ELI_LILLY_AND_COMPANY-FR201312007852

PATIENT
  Age: 59 Year
  Sex: Female

DRUGS (1)
  1. ALIMTA [Suspect]
     Indication: PRODUCT USED FOR UNKNOWN INDICATION
     Dosage: 850 MG, CYCLICAL
     Route: 042
     Dates: start: 20130822, end: 20131003

REACTIONS (7)
  - Death [Fatal]
  - Decreased appetite [Unknown]
  - General physical health deterioration [Unknown]
  - Pyrexia [Unknown]
  - Dyspnoea [Unknown]
  - Lung disorder [Unknown]
  - Septic shock [Unknown]
